FAERS Safety Report 7880325-8 (Version None)
Quarter: 2011Q4

REPORT INFORMATION
  Report Type: 
  Country: None (occurrence: None)
  Receive Date: 20111101
  Receipt Date: 20111025
  Transmission Date: 20120403
  Serious: Yes (Death, Hospitalization, Other)
  Sender: FDA-Public Use
  Company Number: US-BAYER-200940671NA

PATIENT
  Age: 73 Year
  Sex: Female
  Weight: 74.376 kg

DRUGS (25)
  1. TRASYLOL [Suspect]
     Indication: TRICUSPID VALVE REPAIR
  2. HUMULIN N [Concomitant]
     Dosage: 15 UNITS IN THE AM 20 UNITS PM
     Route: 058
  3. HEPARIN [Concomitant]
     Dosage: 3000UNITS IN 500CC LR
     Route: 042
  4. VANCOMYCIN HCL [Concomitant]
     Dosage: 500MG
     Route: 042
     Dates: start: 20070519
  5. ACETYLSALICYLIC ACID SRT [Concomitant]
     Dosage: 81 MG, QD
     Route: 048
  6. MINIPRESS [Concomitant]
     Dosage: 5 MG, BID
     Route: 048
  7. PROTAMINE SULFATE [Concomitant]
     Dosage: 35MG
     Route: 042
     Dates: start: 20070319
  8. PROTAMINE SULFATE [Concomitant]
     Dosage: 50MG
     Route: 042
     Dates: start: 20070319
  9. TRENTAL [Concomitant]
     Dosage: 400 MG, TID
     Route: 048
     Dates: start: 20040901, end: 20070318
  10. PLAVIX [Concomitant]
     Dosage: 75 MG, QD
     Route: 048
  11. ALBUMIN (HUMAN) [Concomitant]
     Dosage: 5% - 250ML X 2
     Dates: start: 20070319
  12. LOTREL [Concomitant]
     Dosage: 10-40MG CAPSULE DAILY
     Route: 048
  13. AMIODARONE HCL [Concomitant]
     Dosage: 1MG PER MINUTE- DO NOT TITRATE
     Dates: start: 20070319
  14. LEVAQUIN [Concomitant]
  15. HUMALOG [Concomitant]
     Dosage: 7 UNITS IN THE AM 7 UNITS PM
     Route: 058
  16. HEPARIN [Concomitant]
     Dosage: 1000 UNITS IN 250CC SALINE
     Route: 042
  17. LASIX [Concomitant]
     Dosage: 20MG
     Route: 042
     Dates: start: 20070319
  18. MANNITOL [Concomitant]
     Dosage: 12.5 GRAMS
     Route: 042
     Dates: start: 20070319
  19. TRASYLOL [Suspect]
     Indication: MITRAL VALVE REPLACEMENT
     Dosage: TEST DOSE (200ML PUMP PRIME) LOADING DOSE (200CC THEN 50CC/HR)
     Route: 042
     Dates: start: 20070319, end: 20070319
  20. AMIODARONE HCL [Concomitant]
     Dosage: 150MG
     Route: 042
     Dates: start: 20070319
  21. ZITHROMAX [Concomitant]
  22. RED BLOOD CELLS [Concomitant]
     Dosage: UNK
     Dates: start: 20070319
  23. ALBUTEROL [Concomitant]
     Dosage: 0.083 %, QID
  24. TRASYLOL [Suspect]
     Indication: CORONARY ARTERY BYPASS
  25. ALBUMIN (HUMAN) [Concomitant]
     Dosage: 12.5
     Route: 042
     Dates: start: 20070319

REACTIONS (13)
  - DEATH [None]
  - RENAL IMPAIRMENT [None]
  - UNEVALUABLE EVENT [None]
  - FEAR [None]
  - RENAL INJURY [None]
  - PAIN [None]
  - MULTI-ORGAN FAILURE [None]
  - EMOTIONAL DISTRESS [None]
  - STRESS [None]
  - ANXIETY [None]
  - RENAL FAILURE [None]
  - ANHEDONIA [None]
  - INJURY [None]
